FAERS Safety Report 6564914-9 (Version None)
Quarter: 2010Q1

REPORT INFORMATION
  Report Type: 
  Country: None (occurrence: None)
  Receive Date: 20100128
  Receipt Date: 20100113
  Transmission Date: 20100710
  Serious: No
  Sender: FDA-Public Use
  Company Number: 2010-00041

PATIENT
  Age: 39 Year
  Sex: Female
  Weight: 53.5244 kg

DRUGS (3)
  1. COLD REMEDY GEL SWABS [Suspect]
     Dosage: QID - 1 WK SPORADIC; END OF MAY2009-JUN2009
     Dates: start: 20090501, end: 20090601
  2. COLD REMEDY GEL SWABS [Suspect]
     Dosage: QID - 1 WK SPORADIC; END OF MAY2009-JUN2009
     Dates: start: 20090501, end: 20090601
  3. BIRTH CONTROL PILL [Concomitant]

REACTIONS (2)
  - AGEUSIA [None]
  - ANOSMIA [None]
